FAERS Safety Report 9225245 (Version 1)
Quarter: 2013Q1

REPORT INFORMATION
  Report Type: Spontaneous
  Country: US (occurrence: None)
  Receive Date: 20120912
  Receipt Date: 20120912
  Transmission Date: 20140127
  Serious: Yes (Other)
  Sender: FDA-Public Use
  Company Number: 2012SP032839

PATIENT
  Sex: Male

DRUGS (3)
  1. VICTRELIS [Suspect]
     Indication: HEPATITIS C
     Route: 048
     Dates: start: 201205
  2. PEGINTRON [Suspect]
     Indication: HEPATITIS C
     Dates: start: 201205
  3. RIBAVIRIN [Suspect]
     Indication: HEPATITIS C
     Dates: start: 201205

REACTIONS (1)
  - Thrombosis [None]
